FAERS Safety Report 4636168-1 (Version None)
Quarter: 2005Q2

REPORT INFORMATION
  Report Type: 
  Country: None (occurrence: None)
  Receive Date: 20050325
  Receipt Date: 20050127
  Transmission Date: 20051028
  Serious: No
  Sender: FDA-Public Use
  Company Number: USA040669157

PATIENT
  Age: 82 Year
  Sex: Female

DRUGS (2)
  1. FORTEO [Suspect]
     Indication: OSTEOPOROSIS
     Dosage: 20 UG DAY
  2. PLAVIX [Concomitant]

REACTIONS (3)
  - INJECTION SITE HAEMORRHAGE [None]
  - UPPER LIMB FRACTURE [None]
  - VISUAL DISTURBANCE [None]
